FAERS Safety Report 12267424 (Version 2)
Quarter: 2016Q2

REPORT INFORMATION
  Report Type: Spontaneous
  Country: GB (occurrence: GB)
  Receive Date: 20160414
  Receipt Date: 20160603
  Transmission Date: 20160815
  Serious: Yes (Other)
  Sender: FDA-Public Use
  Company Number: GB-BAYER-2016-050978

PATIENT
  Age: 59 Year
  Sex: Female

DRUGS (1)
  1. STIVARGA [Suspect]
     Active Substance: REGORAFENIB
     Indication: COLON CANCER METASTATIC
     Dosage: 120 MG, QD
     Route: 048

REACTIONS (9)
  - Urinary tract infection [None]
  - Hypophagia [None]
  - Haematuria [None]
  - Groin pain [None]
  - Product packaging quantity issue [None]
  - Urinary tract stoma complication [None]
  - Fatigue [None]
  - Asthenia [None]
  - Chromaturia [None]

NARRATIVE: CASE EVENT DATE: 201603
